FAERS Safety Report 4332658-X (Version None)
Quarter: 2004Q1

REPORT INFORMATION
  Report Type: 
  Country: None (occurrence: None)
  Receive Date: 20040330
  Receipt Date: 20040311
  Transmission Date: 20041129
  Serious: Yes (Death)
  Sender: FDA-Public Use
  Company Number: D01200400202

PATIENT
  Age: 70 Year
  Sex: Female
  Weight: 70 kg

DRUGS (8)
  1. CISPLATIN [Suspect]
     Indication: NEOPLASM MALIGNANT
     Dosage: 100 MG/M2 OTHER - INTRAVENOUS NOS
     Route: 042
     Dates: start: 20031124, end: 20031124
  2. TICLOPIDINE HYDROCHLORIDE [Concomitant]
  3. FELODIPINE [Concomitant]
  4. RILMENIDINE [Concomitant]
  5. ATORVASTATIN CALCIUM [Concomitant]
  6. PROPAFENONE HYDROCHLORIDE [Concomitant]
  7. ACETAMINOPHEN [Concomitant]
  8. OMEPRAZOLE [Concomitant]

REACTIONS (5)
  - CARDIAC ARREST [None]
  - ERYTHEMA [None]
  - FEBRILE NEUTROPENIA [None]
  - PERFORMANCE STATUS DECREASED [None]
  - RADIATION MUCOSITIS [None]
